FAERS Safety Report 21330915 (Version 2)
Quarter: 2022Q3

REPORT INFORMATION
  Report Type: Spontaneous
  Country: US (occurrence: US)
  Receive Date: 20220914
  Receipt Date: 20220927
  Transmission Date: 20221027
  Serious: No
  Sender: FDA-Public Use
  Company Number: US-TEVA-2022-US-2069823

PATIENT
  Age: 82 Year
  Sex: Female

DRUGS (1)
  1. LIDOCAINE [Suspect]
     Active Substance: LIDOCAINE
     Indication: Neuropathy peripheral
     Route: 062

REACTIONS (3)
  - Application site pain [Unknown]
  - Product use in unapproved indication [Unknown]
  - Drug hypersensitivity [Unknown]
